FAERS Safety Report 7038632-7 (Version None)
Quarter: 2010Q4

REPORT INFORMATION
  Report Type: 
  Country: None (occurrence: None)
  Receive Date: 20101011
  Receipt Date: 20101006
  Transmission Date: 20110411
  Serious: No
  Sender: FDA-Public Use
  Company Number: US-PFIZER INC-2010126928

PATIENT
  Sex: Female

DRUGS (3)
  1. STREPTOMYCIN [Suspect]
     Dosage: UNK
  2. TERRAMYCIN V CAP [Suspect]
     Dosage: UNK
  3. PENICILLIN G PROCAINE [Suspect]
     Dosage: UNK

REACTIONS (4)
  - ABDOMINAL DISCOMFORT [None]
  - DRUG HYPERSENSITIVITY [None]
  - RASH [None]
  - SWELLING [None]
